FAERS Safety Report 4354325-9 (Version None)
Quarter: 2004Q2

REPORT INFORMATION
  Report Type: 
  Country: None (occurrence: None)
  Receive Date: 20040505
  Receipt Date: 20040421
  Transmission Date: 20050107
  Serious: Yes (Hospitalization)
  Sender: FDA-Public Use
  Company Number: 2004210386GB

PATIENT
  Age: 72 Year
  Sex: Female
  Weight: 52 kg

DRUGS (9)
  1. FRAGMIN [Suspect]
     Indication: THROMBOSIS PROPHYLAXIS
     Dosage: 5000 U, QD, SUBCUTANEOUS
     Route: 058
     Dates: start: 20000408, end: 20000414
  2. PERINDOPRIL [Concomitant]
  3. SIMVASTATIN [Concomitant]
  4. THYROXIN (LEVOTHYROXINE SODIUM) [Concomitant]
  5. CLONIDINE HCL [Concomitant]
  6. FUROSEMIDE [Concomitant]
  7. CIMETIDINE HCL [Concomitant]
  8. DICLOFENAC SODIUM [Concomitant]
  9. ASPRIN ^BAYER^ [Concomitant]

REACTIONS (4)
  - BACK PAIN [None]
  - EXTRADURAL HAEMATOMA [None]
  - SPINAL COLUMN STENOSIS [None]
  - STAPHYLOCOCCAL INFECTION [None]
